FAERS Safety Report 18605714 (Version 1)
Quarter: 2020Q4

REPORT INFORMATION
  Report Type: Spontaneous
  Country: JP (occurrence: JP)
  Receive Date: 20201211
  Receipt Date: 20201211
  Transmission Date: 20210114
  Serious: Yes (Hospitalization, Other)
  Sender: FDA-Public Use
  Company Number: JP-009507513-2012JPN000497J

PATIENT
  Age: 89 Year
  Sex: Female

DRUGS (3)
  1. MENESIT TABLETS - 100 [Suspect]
     Active Substance: CARBIDOPA\LEVODOPA
     Dosage: 400 MILLIGRAM A DAY, 1.5 TABLETS IN THE MORNING, 1 TABLET IN THE NOON, 1.5 TABLETS IN THE EVENING
     Route: 048
     Dates: start: 2016
  2. MENESIT TABLETS - 100 [Suspect]
     Active Substance: CARBIDOPA\LEVODOPA
     Dosage: 400 MILLIGRAM A DAY IN FURTHER DIVIDED DOSES
     Route: 048
  3. MENESIT TABLETS - 100 [Suspect]
     Active Substance: CARBIDOPA\LEVODOPA
     Dosage: UNK
     Route: 045
     Dates: start: 20201203

REACTIONS (6)
  - Product use issue [Unknown]
  - Drug ineffective [Unknown]
  - Intestinal obstruction [Recovered/Resolved]
  - Colon cancer [Unknown]
  - Somnolence [Unknown]
  - Intentional product use issue [Unknown]

NARRATIVE: CASE EVENT DATE: 2020
